FAERS Safety Report 9512321 (Version 1)
Quarter: 2013Q3

REPORT INFORMATION
  Report Type: Spontaneous
  Country: US (occurrence: US)
  Receive Date: 20130910
  Receipt Date: 20130910
  Transmission Date: 20140515
  Serious: No
  Sender: FDA-Public Use
  Company Number: -SAAVPROD-BMS17226952

PATIENT
  Age: 83 Year
  Sex: Female

DRUGS (1)
  1. IRBESARTAN [Suspect]

REACTIONS (4)
  - Blood pressure increased [Unknown]
  - Heart rate increased [Unknown]
  - Nervousness [Unknown]
  - Dysgeusia [Unknown]
